FAERS Safety Report 5831211-6 (Version None)
Quarter: 2008Q3

REPORT INFORMATION
  Report Type: 
  Country: None (occurrence: None)
  Receive Date: 20080801
  Receipt Date: 20080529
  Transmission Date: 20090109
  Serious: Yes (Other)
  Sender: FDA-Public Use
  Company Number: US-BRISTOL-MYERS SQUIBB COMPANY-14209340

PATIENT
  Age: 55 Year
  Sex: Female

DRUGS (3)
  1. COUMADIN [Suspect]
  2. AVELOX [Suspect]
     Indication: SINUSITIS
     Dosage: 400MG TABLETS.
     Route: 048
     Dates: start: 20080519
  3. AUGMENTIN '125' [Concomitant]
     Indication: SINUSITIS
     Dates: start: 20080101

REACTIONS (3)
  - BLOOD URINE PRESENT [None]
  - INTERNATIONAL NORMALISED RATIO INCREASED [None]
  - MALAISE [None]
